FAERS Safety Report 6609483-X (Version None)
Quarter: 2010Q1

REPORT INFORMATION
  Report Type: 
  Country: None (occurrence: None)
  Receive Date: 20100302
  Receipt Date: 20100223
  Transmission Date: 20100710
  Serious: Yes (Hospitalization)
  Sender: FDA-Public Use
  Company Number: JP-EISAI INC.-E2020-05844-SPO-JP

PATIENT
  Age: 70 Year
  Sex: Female

DRUGS (9)
  1. ARICEPT [Suspect]
     Indication: DEMENTIA ALZHEIMER'S TYPE
     Route: 048
     Dates: end: 20091101
  2. LIPOAUT [Concomitant]
     Route: 048
     Dates: start: 20090909
  3. GLIMICRON [Concomitant]
     Route: 048
     Dates: start: 20090909
  4. ADALAT CC [Concomitant]
     Route: 048
     Dates: start: 20090909
  5. DIOVAN [Concomitant]
     Route: 048
     Dates: start: 20090909
  6. PLAVIX [Concomitant]
     Route: 048
     Dates: start: 20090909
  7. FERO-GRADUMET [Concomitant]
     Route: 048
     Dates: start: 20090909
  8. CINAL [Concomitant]
     Route: 048
     Dates: start: 20090909
  9. EPADEL S [Concomitant]

REACTIONS (1)
  - RHABDOMYOLYSIS [None]
